FAERS Safety Report 8558373 (Version 1)
Quarter: 2012Q4

REPORT INFORMATION
  Report Type: 
  Country: US (occurrence: US)
  Receive Date: 20120912
  Receipt Date: 20120912
  Transmission Date: 20130627
  Serious: Yes (Death)
  Sender: FDA-Public Use
  Company Number: US-GLAXOSMITHKLINE-A0965889A

PATIENT
  Age: 50 Year
  Sex: Female

DRUGS (8)
  1. TYKERB [Suspect]
     Indication: BREAST CANCER
     Dosage: 1250MG Per day
     Route: 048
     Dates: start: 20120210
  2. XELODA [Concomitant]
  3. OXYCODONE [Concomitant]
  4. OXYCONTIN [Concomitant]
  5. CELEXA [Concomitant]
  6. NEURONTIN [Concomitant]
  7. ROBAXIN [Concomitant]
  8. ZOMETA [Concomitant]

REACTIONS (5)
  - Death [Fatal]
  - Diarrhoea [Recovering/Resolving]
  - Pruritus [Unknown]
  - Rash [Recovered/Resolved]
  - Treatment noncompliance [Unknown]
